FAERS Safety Report 4775193-7 (Version None)
Quarter: 2005Q3

REPORT INFORMATION
  Report Type: 
  Country: None (occurrence: None)
  Receive Date: 20050921
  Receipt Date: 20050913
  Transmission Date: 20060218
  Serious: Yes (Death)
  Sender: FDA-Public Use
  Company Number: US-MERCK-0509USA02191

PATIENT

DRUGS (3)
  1. HYDRODIURIL [Suspect]
     Route: 048
  2. METFORMIN [Suspect]
     Route: 048
  3. GLIPIZIDE [Suspect]
     Route: 048

REACTIONS (2)
  - ADVERSE EVENT [None]
  - DEATH [None]
